FAERS Safety Report 5767978-5 (Version None)
Quarter: 2008Q2

REPORT INFORMATION
  Report Type: 
  Country: None (occurrence: None)
  Receive Date: 20080609
  Receipt Date: 20080602
  Transmission Date: 20081010
  Serious: Yes (Death, Hospitalization)
  Sender: FDA-Public Use
  Company Number: 167-21880-08020037

PATIENT
  Age: 84 Year
  Sex: Male

DRUGS (3)
  1. REVLIMID [Suspect]
     Indication: MYELODYSPLASTIC SYNDROME
     Dosage: 5 MG, 1 IN 1 D, ORAL
     Route: 048
     Dates: start: 20071102, end: 20071113
  2. ATENOLOL [Concomitant]
  3. FELODIPINE [Concomitant]

REACTIONS (11)
  - BONE MARROW FAILURE [None]
  - CEREBRAL INFARCTION [None]
  - CEREBROVASCULAR ACCIDENT [None]
  - CONTUSION [None]
  - DYSPHASIA [None]
  - FALL [None]
  - HEMIPLEGIA [None]
  - NEOPLASM MALIGNANT [None]
  - PNEUMONIA ASPIRATION [None]
  - RENAL IMPAIRMENT [None]
  - SKIN LACERATION [None]
